FAERS Safety Report 11192188 (Version 1)
Quarter: 2015Q2

REPORT INFORMATION
  Report Type: Spontaneous
  Country: ES (occurrence: ES)
  Receive Date: 20150616
  Receipt Date: 20150616
  Transmission Date: 20150821
  Serious: Yes (Life-Threatening, Hospitalization, Other)
  Sender: FDA-Public Use
  Company Number: ES-PFIZER INC-2015195621

PATIENT
  Age: 7 Year
  Sex: Male

DRUGS (1)
  1. BENEFIX [Suspect]
     Active Substance: COAGULATION FACTOR IX RECOMBINANT HUMAN\ISOPROPYL ALCOHOL
     Indication: FACTOR IX DEFICIENCY
     Dosage: 700 IU, UNK (3 TIMES A WEEK)
     Route: 042
     Dates: start: 20101018

REACTIONS (4)
  - Haemorrhage [Recovering/Resolving]
  - Haematoma [Recovering/Resolving]
  - Haemarthrosis [Recovering/Resolving]
  - Factor IX inhibition [Recovering/Resolving]

NARRATIVE: CASE EVENT DATE: 2013
